FAERS Safety Report 19770276 (Version 2)
Quarter: 2021Q3

REPORT INFORMATION
  Report Type: Spontaneous
  Country: NL (occurrence: NL)
  Receive Date: 20210831
  Receipt Date: 20210831
  Transmission Date: 20211014
  Serious: Yes (Death, Life-Threatening, Other)
  Sender: FDA-Public Use
  Company Number: NL-MYLANLABS-2021M1056825

PATIENT
  Age: 86 Year
  Sex: Female

DRUGS (6)
  1. MACROGOL [Concomitant]
     Active Substance: POLYETHYLENE GLYCOLS
     Indication: CONSTIPATION
     Dosage: UNK
  2. COLCHICINE MYLAN [Suspect]
     Active Substance: COLCHICINE
     Indication: PRODUCT USED FOR UNKNOWN INDICATION
     Dosage: 3DD
     Dates: start: 20191108, end: 20191205
  3. MORFINE [Concomitant]
     Active Substance: MORPHINE
     Indication: PAIN
     Dosage: UNK
     Route: 058
     Dates: start: 20191215
  4. PREDNISOLONE. [Concomitant]
     Active Substance: PREDNISOLONE
     Dosage: UNK
     Dates: start: 20191213
  5. MORFINE [Concomitant]
     Active Substance: MORPHINE
     Dosage: UNK
     Dates: start: 20191214
  6. MOVICOLON [Concomitant]
     Active Substance: POLYETHYLENE GLYCOL 3350\POTASSIUM CHLORIDE\SODIUM BICARBONATE\SODIUM CHLORIDE
     Dosage: UNK

REACTIONS (10)
  - Death [Fatal]
  - Weight decreased [Unknown]
  - Asthenia [Unknown]
  - Feeling abnormal [Unknown]
  - Decreased appetite [Unknown]
  - Fatigue [Unknown]
  - Diarrhoea [Unknown]
  - Wound [Unknown]
  - Anal incontinence [Unknown]
  - Pain [Unknown]

NARRATIVE: CASE EVENT DATE: 201911
